FAERS Safety Report 7909090-2 (Version None)
Quarter: 2011Q4

REPORT INFORMATION
  Report Type: 
  Country: None (occurrence: None)
  Receive Date: 20111108
  Receipt Date: 20111024
  Transmission Date: 20120403
  Serious: Yes (Death, Life-Threatening, Hospitalization, Other)
  Sender: FDA-Public Use
  Company Number: 2011MA015505

PATIENT
  Age: 82 Year
  Weight: 51.9822 kg

DRUGS (68)
  1. DIGOXIN [Suspect]
     Indication: CORONARY ARTERY BYPASS
     Dosage: 0.25 MG;QD;PO
     Route: 048
     Dates: start: 19900427, end: 20080416
  2. ARGINADE SUPPLEMENT [Concomitant]
  3. DOBUTAMINE HCL [Concomitant]
  4. FORADIL [Concomitant]
  5. LEVAQUIN [Concomitant]
  6. LIDOCAINE [Concomitant]
  7. VENTOLIN [Concomitant]
  8. DICLOFENAC SODIUM [Concomitant]
  9. ZOCOR [Concomitant]
  10. AMIODARONE HCL [Concomitant]
  11. NASACORT [Concomitant]
  12. NYSTATIN [Concomitant]
  13. SINGULAIR [Concomitant]
  14. SPIRIVA [Concomitant]
  15. ACETAMINOPHEN [Concomitant]
  16. VAGINAL ESTROGEN CREAM [Concomitant]
  17. WELLBUTRIN [Concomitant]
  18. SIMVASTATIN [Concomitant]
  19. ALTACE [Concomitant]
  20. FIORINAL [Concomitant]
  21. IMDUR [Concomitant]
  22. ELOCON [Concomitant]
  23. MULTI-VITAMIN [Concomitant]
  24. PREDNISONE TAB [Concomitant]
  25. PULMICORT [Concomitant]
  26. ZANTAC [Concomitant]
  27. ATIVAN [Concomitant]
  28. HEPARIN [Concomitant]
  29. PNEUMOVAX 23 [Concomitant]
  30. POTASSIUM [Concomitant]
  31. QUININE SULFATE [Concomitant]
  32. TIOTROPIUM [Concomitant]
  33. XANAX [Concomitant]
  34. CARDIZEM [Concomitant]
  35. COMBIVENT [Concomitant]
  36. DEPAMIDE [Concomitant]
  37. POTASSIUM CHLORIDE [Concomitant]
  38. SULAR [Concomitant]
  39. ALLEGRA [Concomitant]
  40. ZITHROMAX [Concomitant]
  41. BIAXIN [Concomitant]
  42. ASPIRIN [Concomitant]
  43. KEFLEX [Concomitant]
  44. MOTRIN [Concomitant]
  45. NITROGLYCERIN [Concomitant]
  46. PREMARIN [Concomitant]
  47. PROTEIN SUPPLEMENT [Concomitant]
  48. TYLENOL-500 [Concomitant]
  49. ALDACTONE [Concomitant]
  50. CARDENE [Concomitant]
  51. CORGARD [Concomitant]
  52. COUMADIN [Concomitant]
  53. FUROSEMIDE [Concomitant]
  54. HYDROCORTISONE [Concomitant]
  55. MEDROL [Concomitant]
  56. TEQUIN [Concomitant]
  57. ADVAIR DISKUS 100/50 [Concomitant]
  58. ANDERONE [Concomitant]
  59. BIOFINE [Concomitant]
  60. CIPRO [Concomitant]
  61. DIGIBIND [Concomitant]
  62. DOPAMINE HCL [Concomitant]
  63. KAY CIEL DURA-TABS [Concomitant]
  64. LOZOL [Concomitant]
  65. MORPHINE [Concomitant]
  66. PLAVIX [Concomitant]
  67. PROTONIX [Concomitant]
  68. ATROPINE [Concomitant]

REACTIONS (78)
  - HEART RATE IRREGULAR [None]
  - ENCEPHALOMALACIA [None]
  - HYDROCEPHALUS [None]
  - TOXICITY TO VARIOUS AGENTS [None]
  - PRURITUS [None]
  - VAGINAL HAEMORRHAGE [None]
  - DECUBITUS ULCER [None]
  - PERIPHERAL ARTERIAL OCCLUSIVE DISEASE [None]
  - SEPTIC SHOCK [None]
  - PNEUMONIA [None]
  - WEIGHT DECREASED [None]
  - CARDIAC MURMUR [None]
  - HYPOKINESIA [None]
  - BLOOD UREA INCREASED [None]
  - VENTRICULAR FIBRILLATION [None]
  - TACHYCARDIA [None]
  - UNRESPONSIVE TO STIMULI [None]
  - ATRIOVENTRICULAR DISSOCIATION [None]
  - OEDEMA PERIPHERAL [None]
  - CONTUSION [None]
  - OROPHARYNGEAL PAIN [None]
  - AORTIC ARTERIOSCLEROSIS [None]
  - CARDIOMYOPATHY [None]
  - ASTHMA [None]
  - SINUS BRADYCARDIA [None]
  - AORTIC ANEURYSM [None]
  - TRANSIENT ISCHAEMIC ATTACK [None]
  - ULCER [None]
  - DIARRHOEA [None]
  - DEMENTIA [None]
  - CAROTID ARTERY STENOSIS [None]
  - INCONTINENCE [None]
  - SCOLIOSIS [None]
  - MYOCARDIAL INFARCTION [None]
  - MUSCLE SPASMS [None]
  - HYPERCHOLESTEROLAEMIA [None]
  - MEMORY IMPAIRMENT [None]
  - CHRONIC OBSTRUCTIVE PULMONARY DISEASE [None]
  - HYPOXIA [None]
  - DECREASED APPETITE [None]
  - URINARY TRACT INFECTION [None]
  - CHEYNE-STOKES RESPIRATION [None]
  - TOOTH ABSCESS [None]
  - BRONCHITIS [None]
  - FALL [None]
  - LIMB INJURY [None]
  - SPINAL OSTEOARTHRITIS [None]
  - LACUNAR INFARCTION [None]
  - AORTIC VALVE INCOMPETENCE [None]
  - ABDOMINAL PAIN UPPER [None]
  - HEART RATE DECREASED [None]
  - HYPOTENSION [None]
  - RENAL FAILURE [None]
  - VENTRICULAR TACHYCARDIA [None]
  - TRICUSPID VALVE INCOMPETENCE [None]
  - WOUND [None]
  - HYPONATRAEMIA [None]
  - INTERMITTENT CLAUDICATION [None]
  - MULTIPLE INJURIES [None]
  - DEPRESSED LEVEL OF CONSCIOUSNESS [None]
  - CARDIAC ARREST [None]
  - MITRAL VALVE INCOMPETENCE [None]
  - MITRAL VALVE CALCIFICATION [None]
  - ANXIETY [None]
  - PERSONALITY DISORDER [None]
  - RHINITIS ALLERGIC [None]
  - ATELECTASIS [None]
  - PAIN [None]
  - HEADACHE [None]
  - BLOOD POTASSIUM DECREASED [None]
  - CARDIOACTIVE DRUG LEVEL INCREASED [None]
  - MUSCULAR WEAKNESS [None]
  - CEREBRAL ATROPHY [None]
  - HYPOKALAEMIA [None]
  - AZOTAEMIA [None]
  - DEHYDRATION [None]
  - NAUSEA [None]
  - LEUKOCYTOSIS [None]
